FAERS Safety Report 10355301 (Version 1)
Quarter: 2014Q3

REPORT INFORMATION
  Report Type: Spontaneous
  Country: US (occurrence: US)
  Receive Date: 20140731
  Receipt Date: 20140731
  Transmission Date: 20150326
  Serious: No
  Sender: FDA-Public Use
  Company Number: US-TEVA-494275USA

PATIENT
  Age: 81 Year
  Sex: Female
  Weight: 75.82 kg

DRUGS (4)
  1. PROAIR HFA [Suspect]
     Active Substance: ALBUTEROL SULFATE
     Dates: start: 20140531, end: 20140603
  2. FISH OIL [Concomitant]
     Active Substance: FISH OIL
  3. BETOPTIC [Concomitant]
     Active Substance: BETAXOLOL HYDROCHLORIDE
     Indication: GLAUCOMA
  4. VITAMIN B3 [Concomitant]
     Active Substance: NIACIN
     Indication: OSTEOPOROSIS

REACTIONS (6)
  - Pruritus [Unknown]
  - Dyspnoea [Unknown]
  - Lung disorder [Unknown]
  - Oral infection [Unknown]
  - Cough [Unknown]
  - Ear infection [Unknown]

NARRATIVE: CASE EVENT DATE: 201406
